FAERS Safety Report 10528863 (Version 1)
Quarter: 2014Q4

REPORT INFORMATION
  Report Type: Spontaneous
  Country: US (occurrence: None)
  Receive Date: 20141017
  Receipt Date: 20141017
  Transmission Date: 20150528
  Serious: Yes (Other)
  Sender: FDA-Public Use
  Company Number: None

PATIENT
  Age: 52 Year
  Sex: Female
  Weight: 90.72 kg

DRUGS (1)
  1. ELAVIL [Suspect]
     Active Substance: AMITRIPTYLINE HYDROCHLORIDE
     Indication: DEPRESSION
     Dates: start: 20140916, end: 20140928

REACTIONS (7)
  - Feeling abnormal [None]
  - Headache [None]
  - Nausea [None]
  - Back pain [None]
  - Malaise [None]
  - Dyspepsia [None]
  - Palpitations [None]

NARRATIVE: CASE EVENT DATE: 20140928
